FAERS Safety Report 12648155 (Version 7)
Quarter: 2018Q3

REPORT INFORMATION
  Report Type: Report from Study
  Country: US (occurrence: US)
  Receive Date: 20160812
  Receipt Date: 20180720
  Transmission Date: 20181010
  Serious: Yes (Hospitalization, Other)
  Sender: FDA-Public Use
  Company Number: US-SA-2016SA072055

PATIENT
  Age: 29 Year
  Sex: Female

DRUGS (8)
  1. VANDETANIB. [Suspect]
     Active Substance: VANDETANIB
     Dosage: UNK UNK,QD
     Route: 048
     Dates: start: 20120705
  2. VANDETANIB. [Suspect]
     Active Substance: VANDETANIB
     Dosage: 200 MG , QOD
     Route: 048
     Dates: start: 20120705
  3. CALCIUM [Concomitant]
     Active Substance: CALCIUM
     Indication: BLOOD CALCIUM DECREASED
     Dosage: UNK UNK,UNK
     Route: 048
  4. ERGOCALCIFEROL. [Concomitant]
     Active Substance: ERGOCALCIFEROL
     Dosage: UNK UNK,UNK
     Route: 048
  5. IMODIUM [Concomitant]
     Active Substance: LOPERAMIDE HYDROCHLORIDE
     Indication: DIARRHOEA
     Dosage: 2 MG,UNK
     Route: 048
  6. VANDETANIB. [Suspect]
     Active Substance: VANDETANIB
     Indication: THYROID CANCER
     Dosage: 100 MGQD
     Route: 048
     Dates: start: 20120705
  7. SYNTHROID [Concomitant]
     Active Substance: LEVOTHYROXINE SODIUM
     Indication: HYPOTHYROIDISM
     Dosage: UNK UNK,UNK
     Route: 048
  8. VANDETANIB. [Suspect]
     Active Substance: VANDETANIB
     Dosage: UNK UNK,QD
     Route: 048
     Dates: start: 20120705

REACTIONS (23)
  - Tumour lysis syndrome [Recovered/Resolved]
  - Blood electrolytes decreased [Unknown]
  - Blood calcium increased [Unknown]
  - Joint swelling [Unknown]
  - Unevaluable event [Unknown]
  - Blood pressure increased [Unknown]
  - Diarrhoea [Not Recovered/Not Resolved]
  - Headache [Not Recovered/Not Resolved]
  - Blood calcium abnormal [Unknown]
  - Dyspnoea [Unknown]
  - Blood thyroid stimulating hormone increased [Unknown]
  - Skin discolouration [Unknown]
  - Vomiting [Recovered/Resolved]
  - Hypoglycaemia [Unknown]
  - Rash [Not Recovered/Not Resolved]
  - Epistaxis [Not Recovered/Not Resolved]
  - Hypocalcaemia [Unknown]
  - Capillary disorder [Unknown]
  - Calcium metabolism disorder [Unknown]
  - Constipation [Recovered/Resolved]
  - Muscle spasms [Unknown]
  - Nausea [Recovered/Resolved]
  - Hypotension [Unknown]

NARRATIVE: CASE EVENT DATE: 20120707
